FAERS Safety Report 6170422-X (Version None)
Quarter: 2009Q2

REPORT INFORMATION
  Report Type: 
  Country: None (occurrence: None)
  Receive Date: 20090428
  Receipt Date: 20090421
  Transmission Date: 20091009
  Serious: Yes (Hospitalization)
  Sender: FDA-Public Use
  Company Number: US-ELI_LILLY_AND_COMPANY-US200904004527

PATIENT
  Sex: Male

DRUGS (3)
  1. HUMULIN R [Suspect]
     Dosage: UNK, 4/D
  2. LEVEMIR [Concomitant]
     Indication: DIABETES MELLITUS
     Dosage: 50 U, EACH EVENING
  3. OXYCODONE HCL EXTENDED-RELEASE [Concomitant]
     Indication: PAIN
     Dosage: 20 MG, 3/D

REACTIONS (14)
  - ACCIDENT [None]
  - AMNESIA [None]
  - BLADDER INJURY [None]
  - BLOOD GLUCOSE INCREASED [None]
  - CATARACT [None]
  - FRACTURE [None]
  - GALLBLADDER OPERATION [None]
  - HERNIA REPAIR [None]
  - HIP FRACTURE [None]
  - KNEE OPERATION [None]
  - LIGAMENT INJURY [None]
  - MUSCLE INJURY [None]
  - PAIN [None]
  - SEXUAL DYSFUNCTION [None]
